FAERS Safety Report 7803759-6 (Version None)
Quarter: 2011Q4

REPORT INFORMATION
  Report Type: 
  Country: None (occurrence: None)
  Receive Date: 20111010
  Receipt Date: 20111007
  Transmission Date: 20120403
  Serious: No
  Sender: FDA-Public Use
  Company Number: US-PFIZER INC-2011240391

PATIENT
  Sex: Female
  Weight: 83.9 kg

DRUGS (6)
  1. MEGARED [Concomitant]
     Dosage: UNK
  2. METFORMIN [Concomitant]
     Indication: DIABETES MELLITUS
     Dosage: 500 MG, DAILY
  3. VITAMIN D [Concomitant]
     Dosage: UNK
  4. COENZYME Q10 [Concomitant]
     Dosage: UNK
  5. ASPIRIN [Concomitant]
     Dosage: 81 MG, UNK
  6. LIPITOR [Suspect]
     Indication: BLOOD CHOLESTEROL INCREASED
     Dosage: 10 MG, DAILY

REACTIONS (1)
  - MYALGIA [None]
